FAERS Safety Report 7996474-X (Version None)
Quarter: 2011Q4

REPORT INFORMATION
  Report Type: 
  Country: None (occurrence: None)
  Receive Date: 20111220
  Receipt Date: 20111216
  Transmission Date: 20120403
  Serious: Yes (Life-Threatening)
  Sender: FDA-Public Use
  Company Number: CN-ASTRAZENECA-2011SE75986

PATIENT
  Age: 20 Year
  Sex: Male
  Weight: 85 kg

DRUGS (4)
  1. PROPOFOL [Suspect]
     Dosage: 50MG
     Route: 042
  2. PROPOFOL [Suspect]
     Indication: ANAESTHESIA PROCEDURE
     Dosage: 20MG
     Route: 042
  3. FENTANYL [Concomitant]
     Indication: ANAESTHESIA PROCEDURE
     Dosage: 0.1MG
     Route: 042
  4. DEXAMETHASONE [Concomitant]
     Dosage: 10MG
     Route: 042

REACTIONS (1)
  - ANAPHYLACTIC SHOCK [None]
